FAERS Safety Report 7497806-1 (Version None)
Quarter: 2011Q2

REPORT INFORMATION
  Report Type: 
  Country: None (occurrence: None)
  Receive Date: 20110524
  Receipt Date: 20091122
  Transmission Date: 20111010
  Serious: Yes (Death, Other)
  Sender: FDA-Public Use
  Company Number: US-BAYER-200940199NA

PATIENT
  Age: 20 Year
  Sex: Female
  Weight: 43.537 kg

DRUGS (18)
  1. CYCLOSPORINE [Concomitant]
     Dosage: UNK
  2. ENALAPRIL MALEATE [Concomitant]
     Dosage: UNK
  3. LASIX [Concomitant]
     Dosage: UNK
  4. NEORAL [Concomitant]
  5. DOPAMINE HCL [Concomitant]
  6. HYDRALAZINE HCL [Concomitant]
  7. VALGANCICLOVIR [Concomitant]
  8. ACETYLSALICYLIC ACID SRT [Concomitant]
     Dosage: UNK
  9. CARVEDILOL [Concomitant]
     Dosage: UNK
  10. DIGOXIN [Concomitant]
  11. EDECRIN [Concomitant]
  12. PREDNISONE [Concomitant]
  13. ACYCLOVIR [Concomitant]
  14. MILRINONE [Concomitant]
  15. NYSTATIN [Concomitant]
     Dosage: UNK
  16. TRASYLOL [Suspect]
     Indication: CORONARY ARTERY BYPASS
     Dosage: UNK
     Route: 042
     Dates: start: 20021001
  17. AMOXICILLIN [Concomitant]
  18. RAPAMUNE [Concomitant]

REACTIONS (14)
  - RENAL IMPAIRMENT [None]
  - ANXIETY [None]
  - UNEVALUABLE EVENT [None]
  - DEPRESSION [None]
  - RENAL INJURY [None]
  - RENAL FAILURE [None]
  - EMOTIONAL DISTRESS [None]
  - INJURY [None]
  - DEATH [None]
  - ANHEDONIA [None]
  - MULTI-ORGAN FAILURE [None]
  - FEAR [None]
  - PAIN [None]
  - STRESS [None]
